FAERS Safety Report 24842373 (Version 2)
Quarter: 2025Q2

REPORT INFORMATION
  Report Type: Spontaneous
  Country: US (occurrence: US)
  Receive Date: 20250115
  Receipt Date: 20250606
  Transmission Date: 20250717
  Serious: No
  Sender: SANOFI AVENTIS
  Company Number: US-SA-2025SA010605

PATIENT
  Sex: Female

DRUGS (1)
  1. DUPIXENT [Suspect]
     Active Substance: DUPILUMAB
     Indication: Nasal polyps
     Dosage: 300 MG, QOW
     Route: 058
     Dates: start: 20241019

REACTIONS (4)
  - Sinusitis [Unknown]
  - Nasal congestion [Not Recovered/Not Resolved]
  - Nasal obstruction [Unknown]
  - Anosmia [Not Recovered/Not Resolved]
